FAERS Safety Report 17602113 (Version 3)
Quarter: 2020Q4

REPORT INFORMATION
  Report Type: Spontaneous
  Country: JP (occurrence: JP)
  Receive Date: 20200331
  Receipt Date: 20201127
  Transmission Date: 20210113
  Serious: Yes (Other)
  Sender: FDA-Public Use
  Company Number: JP-TAKEDA-2020TJP006415

PATIENT

DRUGS (1)
  1. ROZEREM [Suspect]
     Active Substance: RAMELTEON
     Indication: PRODUCT USED FOR UNKNOWN INDICATION
     Dosage: UNK
     Route: 065

REACTIONS (1)
  - Brain neoplasm [Unknown]
